FAERS Safety Report 19274894 (Version 1)
Quarter: 2021Q2

REPORT INFORMATION
  Report Type: Spontaneous
  Country: US (occurrence: US)
  Receive Date: 20210519
  Receipt Date: 20210519
  Transmission Date: 20210717
  Serious: Yes (Other)
  Sender: FDA-Public Use
  Company Number: US-PFIZER INC-2021502201

PATIENT
  Age: 82 Year
  Sex: Female

DRUGS (4)
  1. CIPROFLOXACIN. [Suspect]
     Active Substance: CIPROFLOXACIN
     Dosage: UNK
  2. BACTRIM [Interacting]
     Active Substance: SULFAMETHOXAZOLE\TRIMETHOPRIM
     Dosage: UNK
  3. CORTISONE [Interacting]
     Active Substance: CORTISONE
     Dosage: UNK
     Route: 061
  4. PREDNISONE. [Interacting]
     Active Substance: PREDNISONE
     Dosage: UNK

REACTIONS (4)
  - Respiratory arrest [Unknown]
  - Tendonitis [Unknown]
  - Drug interaction [Unknown]
  - Haemorrhage [Unknown]
